FAERS Safety Report 6729612-7 (Version None)
Quarter: 2010Q2

REPORT INFORMATION
  Report Type: 
  Country: None (occurrence: None)
  Receive Date: 20100518
  Receipt Date: 20100430
  Transmission Date: 20101027
  Serious: Yes (Hospitalization, Other)
  Sender: FDA-Public Use
  Company Number: US-BAYER-200932087NA

PATIENT
  Age: 23 Year
  Sex: Female

DRUGS (2)
  1. YAZ [Suspect]
     Indication: DRUG USE FOR UNKNOWN INDICATION
     Dates: start: 20051201
  2. YASMIN [Suspect]
     Indication: PREMENSTRUAL SYNDROME
     Dates: start: 20050101, end: 20060101

REACTIONS (2)
  - ANXIETY [None]
  - DEEP VEIN THROMBOSIS [None]
